FAERS Safety Report 7827807-2 (Version None)
Quarter: 2011Q4

REPORT INFORMATION
  Report Type: 
  Country: None (occurrence: None)
  Receive Date: 20111020
  Receipt Date: 20111010
  Transmission Date: 20120403
  Serious: Yes (Other)
  Sender: FDA-Public Use
  Company Number: NL-BAYER-2011-099742

PATIENT

DRUGS (2)
  1. DEXAMETHASONE [Interacting]
  2. NAPROXEN SODIUM [Suspect]

REACTIONS (1)
  - GASTROINTESTINAL TOXICITY [None]
